FAERS Safety Report 6140935-5 (Version None)
Quarter: 2009Q2

REPORT INFORMATION
  Report Type: 
  Country: None (occurrence: None)
  Receive Date: 20090401
  Receipt Date: 20090401
  Transmission Date: 20091009
  Serious: Yes (Life-Threatening, Hospitalization)
  Sender: FDA-Public Use
  Company Number: None

PATIENT
  Age: 61 Year
  Sex: Male
  Weight: 127.4 kg

DRUGS (1)
  1. LISINOPRIL AND HYDROCHLOROTHIAZIDE [Suspect]
     Indication: HYPERTENSION
     Dosage: 1 TAB EVERY DAY PO
     Route: 048
     Dates: start: 20090311, end: 20090314

REACTIONS (6)
  - ANGIOEDEMA [None]
  - BLOOD GLUCOSE INCREASED [None]
  - ERYTHEMA [None]
  - HYPOKALAEMIA [None]
  - OEDEMA PERIPHERAL [None]
  - PAIN [None]
